FAERS Safety Report 19745807 (Version 4)
Quarter: 2021Q4

REPORT INFORMATION
  Report Type: Report from Study
  Country: US (occurrence: US)
  Receive Date: 20210825
  Receipt Date: 20211202
  Transmission Date: 20220303
  Serious: Yes (Hospitalization)
  Sender: FDA-Public Use
  Company Number: US-CELGENE-USA-20210804763

PATIENT
  Age: 31 Year
  Sex: Male
  Weight: 64.8 kg

DRUGS (15)
  1. AZACITIDINE [Suspect]
     Active Substance: AZACITIDINE
     Indication: T-cell lymphoma
     Dosage: D1 + 10 OF EACH 21 DAY CYCLE, UPTO 6-CYCLES
     Route: 048
     Dates: start: 20210720, end: 20210810
  2. LENALIDOMIDE [Suspect]
     Active Substance: LENALIDOMIDE
     Indication: T-cell lymphoma
     Dosage: D7 + 10 OF EACH 21 DAY CYCLE, UPTO 6-CYCLES
     Route: 048
     Dates: start: 20210713, end: 20210812
  3. LENALIDOMIDE [Suspect]
     Active Substance: LENALIDOMIDE
     Dosage: D7 + 10 OF EACH 21 DAY CYCLE, UPTO 6-CYCLES
     Route: 048
     Dates: start: 20210818
  4. DEXAMETHASONE [Suspect]
     Active Substance: DEXAMETHASONE
     Indication: T-cell lymphoma
     Dosage: D1 + 10 OF EACH 21 DAY CYCLE, UPTO 6-CYCLES
     Route: 048
     Dates: start: 20210720, end: 20210810
  5. ROMIDEPSIN [Suspect]
     Active Substance: ROMIDEPSIN
     Indication: T-cell lymphoma
     Dosage: D1 + 10 OF EACH 21 DAY CYCLE, UPTO 6-CYCLES
     Route: 041
     Dates: start: 20210720, end: 20210810
  6. ROMIDEPSIN [Suspect]
     Active Substance: ROMIDEPSIN
     Dosage: D1 + 10 OF EACH 21 DAY CYCLE, UPTO 6-CYCLES
     Route: 041
     Dates: start: 20210818
  7. CYCLOPHOSPHAMIDE\DOXORUBICIN\PREDNISONE\VINCRISTINE [Concomitant]
     Active Substance: CYCLOPHOSPHAMIDE\DOXORUBICIN\PREDNISONE\VINCRISTINE
     Indication: Product used for unknown indication
     Dosage: 6-CYCLES
     Route: 065
     Dates: end: 202011
  8. IVERMECTIN [Concomitant]
     Active Substance: IVERMECTIN
     Indication: Acarodermatitis
     Dosage: 2-DOSES
     Route: 065
  9. ALLOPURINOL [Concomitant]
     Active Substance: ALLOPURINOL
     Indication: Product used for unknown indication
     Dosage: 300 MILLIGRAM
     Route: 048
  10. ACYCLOVIR [Concomitant]
     Active Substance: ACYCLOVIR
     Indication: Product used for unknown indication
     Route: 065
  11. ASPIRIN [Concomitant]
     Active Substance: ASPIRIN
     Indication: Product used for unknown indication
     Dosage: 81 MILLIGRAM
     Route: 065
  12. VALACYCLOVIR [Concomitant]
     Active Substance: VALACYCLOVIR HYDROCHLORIDE
     Indication: Product used for unknown indication
     Dosage: 400 MILLIGRAM
     Route: 065
  13. FAMOTIDINE [Concomitant]
     Active Substance: FAMOTIDINE
     Indication: Product used for unknown indication
     Dosage: 20 MILLIGRAM
     Route: 065
  14. KEFLEX [Concomitant]
     Active Substance: CEPHALEXIN
     Indication: Dental caries
     Route: 065
     Dates: start: 20210723
  15. HYDROXYZINE [Concomitant]
     Active Substance: HYDROXYZINE HYDROCHLORIDE
     Indication: Product used for unknown indication
     Route: 065

REACTIONS (2)
  - Rhabdomyolysis [Recovered/Resolved]
  - Blood bilirubin increased [Unknown]

NARRATIVE: CASE EVENT DATE: 20210813
